FAERS Safety Report 6503121-2 (Version None)
Quarter: 2009Q4

REPORT INFORMATION
  Report Type: 
  Country: None (occurrence: None)
  Receive Date: 20091217
  Receipt Date: 20091213
  Transmission Date: 20100525
  Serious: Yes (Hospitalization, Disabling)
  Sender: FDA-Public Use
  Company Number: HR-ROCHE-674413

PATIENT
  Sex: Male
  Weight: 71.8 kg

DRUGS (10)
  1. METHOXY POLYETHYLENE GLYCOL-EPOETIN BETA [Suspect]
     Route: 058
     Dates: start: 20090608
  2. CALCIUM CARBONATE [Concomitant]
     Dates: start: 20080630
  3. CARVEDILOL [Concomitant]
     Dates: start: 20090531
  4. AMLODIPINE [Concomitant]
     Dates: start: 20071005
  5. ISOSORBIDE MONONITRATE [Concomitant]
     Dates: start: 20070730
  6. LISINOPRIL [Concomitant]
     Dates: start: 20071005
  7. PANTOPRAZOL [Concomitant]
     Dates: start: 20090123
  8. CALCITRIOL [Concomitant]
     Dates: start: 20080516
  9. FOLIC ACID [Concomitant]
     Dates: start: 20090814
  10. GLIQUIDONE [Concomitant]
     Dates: start: 20070915

REACTIONS (1)
  - TRANSIENT ISCHAEMIC ATTACK [None]
